FAERS Safety Report 6044925-2 (Version None)
Quarter: 2009Q1

REPORT INFORMATION
  Report Type: 
  Country: None (occurrence: None)
  Receive Date: 20090121
  Receipt Date: 20090119
  Transmission Date: 20090719
  Serious: Yes (Death)
  Sender: FDA-Public Use
  Company Number: JP-JNJFOC-20090103865

PATIENT
  Age: 95 Year
  Sex: Male

DRUGS (7)
  1. FENTANYL CITRATE [Suspect]
     Indication: HEPATIC NEOPLASM MALIGNANT
     Route: 062
  2. URSODESOXYCHOLIC ACID [Concomitant]
     Route: 048
  3. CALCIUM L-ASPARTATE [Concomitant]
     Route: 048
  4. AZOSEMIDE [Concomitant]
     Route: 048
  5. SPIRONOLACTONE [Concomitant]
     Route: 048
  6. LACTOMIN [Concomitant]
     Route: 048
  7. VITAMEDIN [Concomitant]
     Route: 048

REACTIONS (3)
  - ASPHYXIA [None]
  - ASPIRATION [None]
  - VOMITING [None]
